FAERS Safety Report 13422472 (Version 1)
Quarter: 2017Q2

REPORT INFORMATION
  Report Type: Spontaneous
  Country: IT (occurrence: IT)
  Receive Date: 20170410
  Receipt Date: 20170410
  Transmission Date: 20170830
  Serious: Yes (Hospitalization, Other)
  Sender: FDA-Public Use
  Company Number: IT-GLAXOSMITHKLINE-IT2017GSK049341

PATIENT
  Age: 75 Year
  Sex: Male

DRUGS (1)
  1. DICLOFENAC SODIUM. [Suspect]
     Active Substance: DICLOFENAC SODIUM
     Indication: PAIN

REACTIONS (9)
  - Urinary incontinence [Unknown]
  - Thrombocytopenia [Unknown]
  - Normochromic normocytic anaemia [Unknown]
  - Fatigue [Unknown]
  - Blood bilirubin unconjugated increased [Unknown]
  - Blood lactate dehydrogenase increased [Unknown]
  - Jaundice [Unknown]
  - Autoimmune haemolytic anaemia [Unknown]
  - Somnolence [Unknown]
